FAERS Safety Report 12470587 (Version 1)
Quarter: 2016Q2

REPORT INFORMATION
  Report Type: Spontaneous
  Country: US (occurrence: None)
  Receive Date: 20160615
  Receipt Date: 20160615
  Transmission Date: 20160815
  Serious: No
  Sender: FDA-Public Use
  Company Number: None

PATIENT

DRUGS (2)
  1. LEVETIRACETAM LEVETIRACETAM FRESENIUS KABI [Suspect]
     Active Substance: LEVETIRACETAM
     Dosage: INJECTABLE INTRAVENOUS 500 MG PER 5 ML SINGLE USE VIAL 5 ML
     Route: 042
  2. VALPROATE SODIUM VALPROATE SODIUM FRESENIUS KABI [Suspect]
     Active Substance: VALPROATE SODIUM
     Dosage: INJECTABLE INTRAVENOUS SINGLE USE VIAL 5 ML
     Route: 042

REACTIONS (2)
  - Intercepted product selection error [None]
  - Product packaging confusion [None]
